FAERS Safety Report 8523595-5 (Version None)
Quarter: 2012Q3

REPORT INFORMATION
  Report Type: 
  Country: None (occurrence: None)
  Receive Date: 20120709
  Receipt Date: 20120521
  Transmission Date: 20120928
  Serious: Yes (Death)
  Sender: FDA-Public Use
  Company Number: EU-2012-10192

PATIENT
  Sex: Female
  Weight: 45 kg

DRUGS (33)
  1. QUININE SULFATE [Concomitant]
  2. ALBUTEROL SULATE [Concomitant]
  3. SAMSCA [Suspect]
     Indication: HYPONATRAEMIA
     Dosage: 7.5 MG MILLIGRAM(S), DAILY DOSE, ORAL; 15 MG MILLIGRAM(S), DAILY DOSE, ORAL; 30 MG MILLIGRAM(S), DAI
     Route: 048
     Dates: start: 20110301, end: 20110301
  4. SAMSCA [Suspect]
     Indication: INAPPROPRIATE ANTIDIURETIC HORMONE SECRETION
     Dosage: 7.5 MG MILLIGRAM(S), DAILY DOSE, ORAL; 15 MG MILLIGRAM(S), DAILY DOSE, ORAL; 30 MG MILLIGRAM(S), DAI
     Route: 048
     Dates: start: 20110301, end: 20110301
  5. SAMSCA [Suspect]
     Indication: NEOPLASM
     Dosage: 7.5 MG MILLIGRAM(S), DAILY DOSE, ORAL; 15 MG MILLIGRAM(S), DAILY DOSE, ORAL; 30 MG MILLIGRAM(S), DAI
     Route: 048
     Dates: start: 20110301, end: 20110301
  6. SAMSCA [Suspect]
     Indication: HYPONATRAEMIA
     Dosage: 7.5 MG MILLIGRAM(S), DAILY DOSE, ORAL; 15 MG MILLIGRAM(S), DAILY DOSE, ORAL; 30 MG MILLIGRAM(S), DAI
     Route: 048
     Dates: start: 20110225, end: 20110225
  7. SAMSCA [Suspect]
     Indication: INAPPROPRIATE ANTIDIURETIC HORMONE SECRETION
     Dosage: 7.5 MG MILLIGRAM(S), DAILY DOSE, ORAL; 15 MG MILLIGRAM(S), DAILY DOSE, ORAL; 30 MG MILLIGRAM(S), DAI
     Route: 048
     Dates: start: 20110225, end: 20110225
  8. SAMSCA [Suspect]
     Indication: NEOPLASM
     Dosage: 7.5 MG MILLIGRAM(S), DAILY DOSE, ORAL; 15 MG MILLIGRAM(S), DAILY DOSE, ORAL; 30 MG MILLIGRAM(S), DAI
     Route: 048
     Dates: start: 20110225, end: 20110225
  9. SAMSCA [Suspect]
     Indication: HYPONATRAEMIA
     Dosage: 7.5 MG MILLIGRAM(S), DAILY DOSE, ORAL; 15 MG MILLIGRAM(S), DAILY DOSE, ORAL; 30 MG MILLIGRAM(S), DAI
     Route: 048
     Dates: start: 20110221, end: 20110221
  10. SAMSCA [Suspect]
     Indication: INAPPROPRIATE ANTIDIURETIC HORMONE SECRETION
     Dosage: 7.5 MG MILLIGRAM(S), DAILY DOSE, ORAL; 15 MG MILLIGRAM(S), DAILY DOSE, ORAL; 30 MG MILLIGRAM(S), DAI
     Route: 048
     Dates: start: 20110221, end: 20110221
  11. SAMSCA [Suspect]
     Indication: NEOPLASM
     Dosage: 7.5 MG MILLIGRAM(S), DAILY DOSE, ORAL; 15 MG MILLIGRAM(S), DAILY DOSE, ORAL; 30 MG MILLIGRAM(S), DAI
     Route: 048
     Dates: start: 20110221, end: 20110221
  12. SAMSCA [Suspect]
     Indication: HYPONATRAEMIA
     Dosage: 7.5 MG MILLIGRAM(S), DAILY DOSE, ORAL; 15 MG MILLIGRAM(S), DAILY DOSE, ORAL; 30 MG MILLIGRAM(S), DAI
     Route: 048
     Dates: start: 20110302, end: 20110302
  13. SAMSCA [Suspect]
     Indication: INAPPROPRIATE ANTIDIURETIC HORMONE SECRETION
     Dosage: 7.5 MG MILLIGRAM(S), DAILY DOSE, ORAL; 15 MG MILLIGRAM(S), DAILY DOSE, ORAL; 30 MG MILLIGRAM(S), DAI
     Route: 048
     Dates: start: 20110302, end: 20110302
  14. SAMSCA [Suspect]
     Indication: NEOPLASM
     Dosage: 7.5 MG MILLIGRAM(S), DAILY DOSE, ORAL; 15 MG MILLIGRAM(S), DAILY DOSE, ORAL; 30 MG MILLIGRAM(S), DAI
     Route: 048
     Dates: start: 20110302, end: 20110302
  15. SAMSCA [Suspect]
     Indication: HYPONATRAEMIA
     Dosage: 7.5 MG MILLIGRAM(S), DAILY DOSE, ORAL; 15 MG MILLIGRAM(S), DAILY DOSE, ORAL; 30 MG MILLIGRAM(S), DAI
     Route: 048
     Dates: start: 20110314, end: 20110314
  16. SAMSCA [Suspect]
     Indication: INAPPROPRIATE ANTIDIURETIC HORMONE SECRETION
     Dosage: 7.5 MG MILLIGRAM(S), DAILY DOSE, ORAL; 15 MG MILLIGRAM(S), DAILY DOSE, ORAL; 30 MG MILLIGRAM(S), DAI
     Route: 048
     Dates: start: 20110314, end: 20110314
  17. SAMSCA [Suspect]
     Indication: NEOPLASM
     Dosage: 7.5 MG MILLIGRAM(S), DAILY DOSE, ORAL; 15 MG MILLIGRAM(S), DAILY DOSE, ORAL; 30 MG MILLIGRAM(S), DAI
     Route: 048
     Dates: start: 20110314, end: 20110314
  18. SAMSCA [Suspect]
     Indication: HYPONATRAEMIA
     Dosage: 7.5 MG MILLIGRAM(S), DAILY DOSE, ORAL; 15 MG MILLIGRAM(S), DAILY DOSE, ORAL; 30 MG MILLIGRAM(S), DAI
     Route: 048
     Dates: start: 20110209, end: 20110209
  19. SAMSCA [Suspect]
     Indication: INAPPROPRIATE ANTIDIURETIC HORMONE SECRETION
     Dosage: 7.5 MG MILLIGRAM(S), DAILY DOSE, ORAL; 15 MG MILLIGRAM(S), DAILY DOSE, ORAL; 30 MG MILLIGRAM(S), DAI
     Route: 048
     Dates: start: 20110209, end: 20110209
  20. SAMSCA [Suspect]
     Indication: NEOPLASM
     Dosage: 7.5 MG MILLIGRAM(S), DAILY DOSE, ORAL; 15 MG MILLIGRAM(S), DAILY DOSE, ORAL; 30 MG MILLIGRAM(S), DAI
     Route: 048
     Dates: start: 20110209, end: 20110209
  21. SAMSCA [Suspect]
     Indication: HYPONATRAEMIA
     Dosage: 7.5 MG MILLIGRAM(S), DAILY DOSE, ORAL; 15 MG MILLIGRAM(S), DAILY DOSE, ORAL; 30 MG MILLIGRAM(S), DAI
     Route: 048
     Dates: start: 20110223, end: 20110223
  22. SAMSCA [Suspect]
     Indication: INAPPROPRIATE ANTIDIURETIC HORMONE SECRETION
     Dosage: 7.5 MG MILLIGRAM(S), DAILY DOSE, ORAL; 15 MG MILLIGRAM(S), DAILY DOSE, ORAL; 30 MG MILLIGRAM(S), DAI
     Route: 048
     Dates: start: 20110223, end: 20110223
  23. SAMSCA [Suspect]
     Indication: NEOPLASM
     Dosage: 7.5 MG MILLIGRAM(S), DAILY DOSE, ORAL; 15 MG MILLIGRAM(S), DAILY DOSE, ORAL; 30 MG MILLIGRAM(S), DAI
     Route: 048
     Dates: start: 20110223, end: 20110223
  24. SAMSCA [Suspect]
     Indication: HYPONATRAEMIA
     Dosage: 7.5 MG MILLIGRAM(S), DAILY DOSE, ORAL; 15 MG MILLIGRAM(S), DAILY DOSE, ORAL; 30 MG MILLIGRAM(S), DAI
     Route: 048
     Dates: start: 20110227, end: 20110227
  25. SAMSCA [Suspect]
     Indication: INAPPROPRIATE ANTIDIURETIC HORMONE SECRETION
     Dosage: 7.5 MG MILLIGRAM(S), DAILY DOSE, ORAL; 15 MG MILLIGRAM(S), DAILY DOSE, ORAL; 30 MG MILLIGRAM(S), DAI
     Route: 048
     Dates: start: 20110227, end: 20110227
  26. SAMSCA [Suspect]
     Indication: NEOPLASM
     Dosage: 7.5 MG MILLIGRAM(S), DAILY DOSE, ORAL; 15 MG MILLIGRAM(S), DAILY DOSE, ORAL; 30 MG MILLIGRAM(S), DAI
     Route: 048
     Dates: start: 20110227, end: 20110227
  27. ACETAMINOPHEN [Concomitant]
  28. SERETIDE (FLUTICASONE PROPIONATE, SALMETEROL XINAFOATE) [Concomitant]
  29. LACTULOSE [Concomitant]
  30. TEMAZEPAM [Concomitant]
  31. RANITIDINE [Concomitant]
  32. SPIRIVA [Concomitant]
  33. CITALOPRAM [Concomitant]

REACTIONS (3)
  - RESTLESSNESS [None]
  - DISCOMFORT [None]
  - WRONG TECHNIQUE IN DRUG USAGE PROCESS [None]
